FAERS Safety Report 15308916 (Version 1)
Quarter: 2018Q3

REPORT INFORMATION
  Report Type: Spontaneous
  Country: VN (occurrence: VN)
  Receive Date: 20180823
  Receipt Date: 20180823
  Transmission Date: 20181010
  Serious: Yes (Other)
  Sender: FDA-Public Use
  Company Number: VN-ROCHE-2171227

PATIENT
  Sex: Female

DRUGS (4)
  1. HERCEPTIN [Suspect]
     Active Substance: TRASTUZUMAB
     Indication: HER-2 POSITIVE BREAST CANCER
     Route: 042
     Dates: start: 20180309
  2. CARBOPLATIN. [Suspect]
     Active Substance: CARBOPLATIN
     Indication: HER-2 POSITIVE BREAST CANCER
     Route: 041
     Dates: start: 20180309, end: 20180622
  3. DOCETAXEL. [Suspect]
     Active Substance: DOCETAXEL
     Indication: HER-2 POSITIVE BREAST CANCER
     Route: 041
     Dates: start: 20180309, end: 20180622
  4. PERJETA [Suspect]
     Active Substance: PERTUZUMAB
     Indication: HER-2 POSITIVE BREAST CANCER
     Route: 041
     Dates: start: 20180309, end: 20180622

REACTIONS (4)
  - Febrile neutropenia [Recovered/Resolved]
  - Vomiting [Unknown]
  - Alopecia [Unknown]
  - Diarrhoea [Unknown]
